FAERS Safety Report 20599400 (Version 3)
Quarter: 2022Q2

REPORT INFORMATION
  Report Type: Report from Study
  Country: CA (occurrence: CA)
  Receive Date: 20220315
  Receipt Date: 20220412
  Transmission Date: 20220721
  Serious: Yes (Hospitalization, Other)
  Sender: FDA-Public Use
  Company Number: CA-ABBVIE-22K-028-4314985-00

PATIENT
  Age: 78 Year
  Sex: Female

DRUGS (1)
  1. HUMIRA [Suspect]
     Active Substance: ADALIMUMAB
     Indication: Rheumatoid arthritis
     Route: 058
     Dates: start: 20181220, end: 20220308

REACTIONS (3)
  - Haemorrhage [Unknown]
  - Abdominal neoplasm [Unknown]
  - Squamous cell carcinoma of the vagina [Unknown]

NARRATIVE: CASE EVENT DATE: 20220301
